FAERS Safety Report 5913840-4 (Version None)
Quarter: 2008Q4

REPORT INFORMATION
  Report Type: 
  Country: None (occurrence: None)
  Receive Date: 20081009
  Receipt Date: 20080930
  Transmission Date: 20090506
  Serious: Yes (Hospitalization)
  Sender: FDA-Public Use
  Company Number: A0749860A

PATIENT
  Sex: Female

DRUGS (3)
  1. LAMICTAL [Suspect]
     Dosage: 50MG PER DAY
     Route: 048
     Dates: start: 20080912, end: 20080921
  2. PROZAC [Concomitant]
  3. KLONOPIN [Concomitant]

REACTIONS (4)
  - LIP SWELLING [None]
  - NONSPECIFIC REACTION [None]
  - OEDEMA MOUTH [None]
  - RASH [None]
